FAERS Safety Report 25589040 (Version 1)
Quarter: 2025Q3

REPORT INFORMATION
  Report Type: Spontaneous
  Country: US (occurrence: US)
  Receive Date: 20250722
  Receipt Date: 20250722
  Transmission Date: 20251020
  Serious: No
  Sender: Norvium Bioscience
  Company Number: US-Norvium Bioscience LLC-080281

PATIENT
  Age: 75 Year
  Sex: Male
  Weight: 76 kg

DRUGS (4)
  1. HEPARIN SODIUM [Suspect]
     Active Substance: HEPARIN SODIUM
     Indication: Product used for unknown indication
  2. FENTANYL [Concomitant]
     Active Substance: FENTANYL
     Indication: Product used for unknown indication
  3. MIDAZOLAM [Concomitant]
     Active Substance: MIDAZOLAM
     Indication: Product used for unknown indication
  4. ISOVUE [Concomitant]
     Active Substance: IOPAMIDOL
     Indication: Product used for unknown indication

REACTIONS (1)
  - Drug effect less than expected [Unknown]
